FAERS Safety Report 21325761 (Version 1)
Quarter: 2022Q3

REPORT INFORMATION
  Report Type: Report from Study
  Country: US (occurrence: US)
  Receive Date: 20220913
  Receipt Date: 20220913
  Transmission Date: 20221026
  Serious: Yes (Death, Hospitalization, Other)
  Sender: FDA-Public Use
  Company Number: US-CELGENE-USA-2016087436

PATIENT
  Age: 61 Year
  Sex: Female
  Weight: 113 kg

DRUGS (61)
  1. PACLITAXEL [Suspect]
     Active Substance: PACLITAXEL
     Indication: Breast cancer metastatic
     Dosage: 100 MILLIGRAM/SQ. METER
     Route: 042
     Dates: start: 20160315, end: 20160418
  2. PACLITAXEL [Suspect]
     Active Substance: PACLITAXEL
     Dosage: 60 MILLIGRAM/SQ. METER
     Route: 042
     Dates: start: 20160809, end: 20160823
  3. NIVOLUMAB [Suspect]
     Active Substance: NIVOLUMAB
     Indication: Breast cancer metastatic
     Dosage: 3 MILLIGRAM/KILOGRAM
     Route: 042
     Dates: start: 20160809, end: 20160823
  4. GEMCITABINE [Concomitant]
     Active Substance: GEMCITABINE
     Indication: Breast cancer
     Dosage: FREQUENCY TEXT: X1 DOSE
     Route: 042
     Dates: start: 20161005, end: 20161005
  5. GEMCITABINE [Concomitant]
     Active Substance: GEMCITABINE
     Dosage: FREQUENCY TEXT: X1 DOSE
     Route: 042
     Dates: start: 20161012, end: 20161012
  6. CARBOPLATIN [Concomitant]
     Active Substance: CARBOPLATIN
     Indication: Breast cancer
     Dosage: FREQUENCY TEXT: X1 DOSE
     Route: 042
     Dates: start: 20161005, end: 20161005
  7. CARBOPLATIN [Concomitant]
     Active Substance: CARBOPLATIN
     Dosage: FREQUENCY TEXT: X1 DOSE
     Route: 042
     Dates: start: 20161012, end: 20161012
  8. ZOFRAN [Concomitant]
     Active Substance: ONDANSETRON HYDROCHLORIDE
     Indication: Nausea
     Dosage: 24 MILLIGRAM
     Route: 048
     Dates: start: 20151201
  9. ZOFRAN [Concomitant]
     Active Substance: ONDANSETRON HYDROCHLORIDE
     Route: 048
  10. GABAPENTIN [Concomitant]
     Active Substance: GABAPENTIN
     Indication: Neuropathy peripheral
     Route: 048
     Dates: start: 20160212
  11. GABAPENTIN [Concomitant]
     Active Substance: GABAPENTIN
     Dosage: 600 MILLIGRAM
     Route: 048
     Dates: start: 20160823
  12. LACTULOSE [Concomitant]
     Active Substance: LACTULOSE
     Indication: Constipation
     Dosage: 10G/15ML
     Route: 048
     Dates: start: 20160405
  13. TRESIBA [Concomitant]
     Active Substance: INSULIN DEGLUDEC
     Indication: Diabetes mellitus
     Dosage: 80 IU (INTERNATIONAL UNIT)
     Route: 058
     Dates: start: 20160712
  14. TOPROL XL [Concomitant]
     Active Substance: METOPROLOL SUCCINATE
     Indication: Hypertension
     Dosage: 100 MILLIGRAM
     Route: 048
     Dates: start: 20160712
  15. VITAMIN D3 [Concomitant]
     Active Substance: CHOLECALCIFEROL
     Indication: Vitamin D deficiency
     Dosage: 50000 IU (INTERNATIONAL UNIT)
     Route: 048
     Dates: start: 20160828
  16. METOPROLOL [Concomitant]
     Active Substance: METOPROLOL
     Indication: Product used for unknown indication
     Dosage: 50 MILLIGRAM
     Route: 048
     Dates: start: 20160828
  17. AMMONIUM LACTATE [Concomitant]
     Active Substance: AMMONIUM LACTATE
     Indication: Product used for unknown indication
     Dosage: 2 DOSAGE FORMS
     Route: 061
     Dates: start: 20160825
  18. XARELTO [Concomitant]
     Active Substance: RIVAROXABAN
     Indication: Deep vein thrombosis
     Dosage: 20 MILLIGRAM
     Route: 048
     Dates: end: 20160822
  19. XARELTO [Concomitant]
     Active Substance: RIVAROXABAN
     Indication: Pulmonary embolism
     Dosage: 40 MILLIGRAM
     Route: 048
  20. BENZONATATE [Concomitant]
     Active Substance: BENZONATATE
     Indication: Product used for unknown indication
     Dosage: 600 MILLIGRAM
     Route: 048
     Dates: start: 20160825
  21. INSULIN DETEMIR [Concomitant]
     Active Substance: INSULIN DETEMIR
     Indication: Product used for unknown indication
     Dosage: 35 IU (INTERNATIONAL UNIT)
     Route: 058
     Dates: start: 20160824
  22. Diphenhydramine-Zinc Acetate [Concomitant]
     Indication: Pruritus
     Dosage: 2%-0.1%
     Route: 061
     Dates: start: 20160824
  23. BUPROPION [Concomitant]
     Active Substance: BUPROPION
     Indication: Product used for unknown indication
     Dosage: 300 MILLIGRAM
     Route: 048
     Dates: start: 20160824
  24. DILTIAZEM [Concomitant]
     Active Substance: DILTIAZEM
     Indication: Product used for unknown indication
     Dosage: 120 MILLIGRAM
     Route: 048
     Dates: start: 20160824
  25. INSULIN LISPRO [Concomitant]
     Active Substance: INSULIN LISPRO
     Indication: Product used for unknown indication
     Dosage: 900 IU (INTERNATIONAL UNIT)
     Route: 058
     Dates: start: 20160824
  26. INSULIN LISPRO [Concomitant]
     Active Substance: INSULIN LISPRO
     Dosage: 60 IU (INTERNATIONAL UNIT)
     Route: 058
     Dates: start: 20160824
  27. PHENOL [Concomitant]
     Active Substance: PHENOL
     Indication: Oropharyngeal pain
     Dosage: 54 DOSAGE FORMS
     Route: 061
     Dates: start: 20160823
  28. DULOXETINE [Concomitant]
     Active Substance: DULOXETINE
     Indication: Product used for unknown indication
     Dosage: 60 MILLIGRAM
     Route: 048
     Dates: start: 20160823
  29. DULOXETINE [Concomitant]
     Active Substance: DULOXETINE
     Dosage: 120 MILLIGRAM
     Route: 048
  30. PRILOSEC [Concomitant]
     Active Substance: OMEPRAZOLE MAGNESIUM
     Indication: Product used for unknown indication
     Dosage: 20 MILLIGRAM
     Route: 048
     Dates: start: 20160823
  31. PRAMIPEXOLE [Concomitant]
     Active Substance: PRAMIPEXOLE
     Indication: Product used for unknown indication
     Dosage: 2 MILLIGRAM
     Route: 048
     Dates: start: 20160823
  32. DEXTROSE [Concomitant]
     Active Substance: DEXTROSE
     Indication: Blood glucose decreased
     Dosage: 50 MILLILITER
     Route: 042
     Dates: start: 20160823
  33. ACETAMINOPHEN [Concomitant]
     Active Substance: ACETAMINOPHEN
     Indication: Pain
     Dosage: 1300 MILLIGRAM
     Route: 048
     Dates: start: 20160823
  34. SENNA [Concomitant]
     Active Substance: SENNA LEAF\SENNOSIDES\SENNOSIDES A AND B
     Indication: Constipation
     Dosage: 34.4 MILLIGRAM
     Route: 048
     Dates: start: 20160823
  35. CHOLECALCIFEROL [Concomitant]
     Active Substance: CHOLECALCIFEROL
     Indication: Product used for unknown indication
     Dosage: 50000 IU (INTERNATIONAL UNIT)
     Route: 048
  36. VITAMINS [Concomitant]
     Active Substance: VITAMINS
     Indication: Product used for unknown indication
     Dosage: DAILY DOSE : 2 CAPSULE?UNIT DOSE : 1 CAPSULE?2 CAPSULE
     Route: 048
  37. BIOTIN [Concomitant]
     Active Substance: BIOTIN
     Indication: Product used for unknown indication
     Dosage: DAILY DOSE : 1 TABLET?UNIT DOSE : 1 TABLET?1 TABLET
     Route: 048
  38. INSULIN ASPART [Concomitant]
     Active Substance: INSULIN ASPART
     Indication: Product used for unknown indication
     Dosage: 75 IU (INTERNATIONAL UNIT)
     Route: 058
  39. SODIUM CHLORIDE [Concomitant]
     Active Substance: SODIUM CHLORIDE
     Indication: Product used for unknown indication
     Dosage: 2400 MILLILITER
     Route: 042
  40. DECADRON [Concomitant]
     Active Substance: DEXAMETHASONE
     Indication: Product used for unknown indication
     Dosage: 8 MILLIGRAM
     Route: 065
  41. DECADRON [Concomitant]
     Active Substance: DEXAMETHASONE
     Dosage: 8 MILLIGRAM
     Route: 065
  42. DECADRON [Concomitant]
     Active Substance: DEXAMETHASONE
     Dosage: FREQUENCY TEXT: NOT PROVIDED
     Route: 042
     Dates: start: 20161005, end: 20161005
  43. DECADRON [Concomitant]
     Active Substance: DEXAMETHASONE
     Dosage: FREQUENCY TEXT: NOT PROVIDED
     Route: 042
     Dates: start: 20161012, end: 20161012
  44. VANCOMYCIN [Concomitant]
     Active Substance: VANCOMYCIN
     Indication: Product used for unknown indication
     Route: 065
  45. CEFEPIME [Concomitant]
     Active Substance: CEFEPIME HYDROCHLORIDE
     Indication: Product used for unknown indication
     Route: 065
  46. ADRIAMYCIN [Concomitant]
     Active Substance: DOXORUBICIN HYDROCHLORIDE
     Indication: Product used for unknown indication
     Route: 065
     Dates: start: 2011
  47. AMBIEN [Concomitant]
     Active Substance: ZOLPIDEM TARTRATE
     Indication: Insomnia
     Dosage: 5 MILLIGRAM
     Route: 065
  48. LOVENOX [Concomitant]
     Active Substance: ENOXAPARIN SODIUM
     Indication: Portal vein thrombosis
  49. VESICARE [Concomitant]
     Active Substance: SOLIFENACIN SUCCINATE
     Indication: Product used for unknown indication
     Route: 048
  50. CIPROFLOXACIN [Concomitant]
     Active Substance: CIPROFLOXACIN
     Indication: Product used for unknown indication
     Dosage: 12 DROPS
     Route: 047
  51. ALBUTEROL [Concomitant]
     Active Substance: ALBUTEROL
     Indication: Product used for unknown indication
     Dosage: FREQUENCY TEXT: PRN?360 MICROGRAM
     Route: 055
  52. Robitussin AC [Concomitant]
     Indication: Product used for unknown indication
     Dosage: DAILY DOSE : 2 TEASPOON?UNIT DOSE : 1 TEASPOON?FREQUENCY TEXT: PRN?2 TEASPOON
     Route: 065
  53. CYMBALTA [Concomitant]
     Active Substance: DULOXETINE HYDROCHLORIDE
     Indication: Product used for unknown indication
     Dosage: FREQUENCY TEXT: HS
     Route: 048
  54. LAC-HYDRIN [Concomitant]
     Active Substance: AMMONIUM LACTATE
     Indication: Product used for unknown indication
     Route: 061
  55. MIRAPEX [Concomitant]
     Active Substance: PRAMIPEXOLE DIHYDROCHLORIDE
     Indication: Product used for unknown indication
     Route: 048
  56. PHENERGAN [Concomitant]
     Active Substance: PROMETHAZINE HYDROCHLORIDE
     Indication: Nausea
     Dosage: FREQUENCY TEXT: PRN
     Route: 042
  57. PHENERGAN [Concomitant]
     Active Substance: PROMETHAZINE HYDROCHLORIDE
     Indication: Vomiting
  58. TYLENOL [Concomitant]
     Active Substance: ACETAMINOPHEN
     Indication: Pain
     Dosage: FREQUENCY TEXT: PRN
     Route: 048
  59. CARDIZEM [Concomitant]
     Active Substance: DILTIAZEM HYDROCHLORIDE
     Indication: Product used for unknown indication
     Route: 048
  60. NOVOLOG [Concomitant]
     Active Substance: INSULIN ASPART
     Indication: Product used for unknown indication
     Route: 058
  61. LASIX [Concomitant]
     Active Substance: FUROSEMIDE
     Indication: Product used for unknown indication
     Route: 065

REACTIONS (7)
  - Malignant neoplasm progression [Fatal]
  - Generalised oedema [Recovered/Resolved]
  - Anaemia [Recovered/Resolved]
  - Hypotension [Recovered/Resolved]
  - Dyspnoea [Not Recovered/Not Resolved]
  - Portal vein thrombosis [Not Recovered/Not Resolved]
  - Portal vein occlusion [Not Recovered/Not Resolved]

NARRATIVE: CASE EVENT DATE: 20160823
